FAERS Safety Report 9152477 (Version 1)
Quarter: 2013Q1

REPORT INFORMATION
  Report Type: Spontaneous
  Country: FR (occurrence: FR)
  Receive Date: 20130308
  Receipt Date: 20130308
  Transmission Date: 20140127
  Serious: Yes (Hospitalization)
  Sender: FDA-Public Use
  Company Number: FR-PFIZER INC-2013074163

PATIENT
  Age: 74 Year
  Sex: Male

DRUGS (11)
  1. SOLU-MEDROL [Suspect]
     Indication: GLOMERULONEPHRITIS
     Dosage: 3 BOLUS
     Dates: start: 20130118, end: 20130118
  2. SOLU-MEDROL [Suspect]
     Dosage: 40 MG DAILY
  3. AMLODIPINE [Concomitant]
  4. ATORVASTATIN [Concomitant]
  5. BISOPROLOL [Concomitant]
  6. KARDEGIC [Concomitant]
  7. PLAVIX [Concomitant]
  8. DUOPLAVIN [Concomitant]
  9. EZETROL [Concomitant]
  10. ESOMEPRAZOLE [Concomitant]
  11. DISCOTRINE [Concomitant]

REACTIONS (2)
  - Lipase increased [Recovered/Resolved]
  - Pancreatitis acute [Recovered/Resolved]
